FAERS Safety Report 25427133 (Version 1)
Quarter: 2025Q2

REPORT INFORMATION
  Report Type: Spontaneous
  Country: US (occurrence: US)
  Receive Date: 20250612
  Receipt Date: 20250612
  Transmission Date: 20250717
  Serious: No
  Sender: GLAXOSMITHKLINE
  Company Number: US-GSK-US2025070680

PATIENT
  Sex: Female

DRUGS (1)
  1. TRELEGY ELLIPTA [Suspect]
     Active Substance: FLUTICASONE FUROATE\UMECLIDINIUM BROMIDE\VILANTEROL TRIFENATATE
     Indication: Respiratory symptom
     Dosage: 1 PUFF(S), QD,100/62.5/25MCG

REACTIONS (2)
  - Intercepted product dispensing error [Not Recovered/Not Resolved]
  - Product use in unapproved indication [Unknown]
